FAERS Safety Report 5879688-4 (Version None)
Quarter: 2008Q3

REPORT INFORMATION
  Report Type: 
  Country: None (occurrence: None)
  Receive Date: 20080911
  Receipt Date: 20080911
  Transmission Date: 20090109
  Serious: No
  Sender: FDA-Public Use
  Company Number: None

PATIENT
  Sex: Female
  Weight: 60 kg

DRUGS (2)
  1. CYCLOPHOSPHAMIDE [Suspect]
     Dosage: 1014 MG
  2. DOXORUBICIN HYDROCHLORIDE [Suspect]
     Dosage: 101 MG

REACTIONS (4)
  - BODY TEMPERATURE INCREASED [None]
  - COUGH [None]
  - NEUTROPHIL COUNT DECREASED [None]
  - RHINORRHOEA [None]
